FAERS Safety Report 6601109-4 (Version None)
Quarter: 2010Q1

REPORT INFORMATION
  Report Type: 
  Country: None (occurrence: None)
  Receive Date: 20100224
  Receipt Date: 20100224
  Transmission Date: 20100710
  Serious: Yes (Death)
  Sender: FDA-Public Use
  Company Number: None

PATIENT
  Age: 48 Year
  Sex: Male
  Weight: 72.5755 kg

DRUGS (1)
  1. CHANTIX [Suspect]
     Indication: SMOKING CESSATION THERAPY
     Dates: start: 20090401

REACTIONS (8)
  - ABNORMAL BEHAVIOUR [None]
  - ALCOHOL ABUSE [None]
  - ARTHRITIS [None]
  - BACK PAIN [None]
  - COMPLETED SUICIDE [None]
  - IRRITABILITY [None]
  - PERSONALITY CHANGE [None]
  - TREATMENT NONCOMPLIANCE [None]
